FAERS Safety Report 20981268 (Version 3)
Quarter: 2022Q3

REPORT INFORMATION
  Report Type: Report from Study
  Country: KR (occurrence: KR)
  Receive Date: 20220620
  Receipt Date: 20220926
  Transmission Date: 20221027
  Serious: Yes (Hospitalization, Other)
  Sender: FDA-Public Use
  Company Number: KR-TAKEDA-2022TUS040221

PATIENT
  Age: 40 Year
  Sex: Male
  Weight: 80 kg

DRUGS (44)
  1. VEDOLIZUMAB [Suspect]
     Active Substance: VEDOLIZUMAB
     Indication: Colitis ulcerative
     Dosage: 300 MILLIGRAM
     Route: 042
     Dates: start: 20210823, end: 20210823
  2. VEDOLIZUMAB [Suspect]
     Active Substance: VEDOLIZUMAB
     Dosage: 300 MILLIGRAM
     Route: 042
     Dates: start: 20210906, end: 20210906
  3. VEDOLIZUMAB [Suspect]
     Active Substance: VEDOLIZUMAB
     Dosage: 300 MILLIGRAM
     Route: 042
     Dates: start: 20211004, end: 20211004
  4. VEDOLIZUMAB [Suspect]
     Active Substance: VEDOLIZUMAB
     Dosage: 300 MILLIGRAM
     Route: 042
     Dates: start: 20211129, end: 20211129
  5. VEDOLIZUMAB [Suspect]
     Active Substance: VEDOLIZUMAB
     Dosage: 300 MILLIGRAM
     Route: 042
     Dates: start: 20220124, end: 20220124
  6. VEDOLIZUMAB [Suspect]
     Active Substance: VEDOLIZUMAB
     Dosage: 300 MILLIGRAM
     Route: 042
     Dates: start: 20220321
  7. FEROBA YOU [Concomitant]
     Indication: Anaemia
     Dosage: 471 MILLIGRAM, QD
     Route: 048
     Dates: start: 20210222, end: 20220607
  8. Venoferrum [Concomitant]
     Indication: Anaemia
     Dosage: 100 MILLIGRAM
     Route: 042
     Dates: start: 20220124
  9. AMINO ACIDS\DEXTROSE\ELECTROLYTES NOS\SOYBEAN OIL\VITAMINS [Concomitant]
     Active Substance: AMINO ACIDS\DEXTROSE\ELECTROLYTES NOS\SOYBEAN OIL\VITAMINS
     Indication: Colitis ulcerative
     Dosage: 1085 MILLILITER, QD
     Route: 042
     Dates: start: 20220404, end: 20220405
  10. HYDROCORTISONE SODIUM SUCCINATE [Concomitant]
     Active Substance: HYDROCORTISONE SODIUM SUCCINATE
     Indication: Premedication
     Dosage: 100 MILLIGRAM
     Route: 042
     Dates: start: 20220405, end: 20220507
  11. HYDROCORTISONE SODIUM SUCCINATE [Concomitant]
     Active Substance: HYDROCORTISONE SODIUM SUCCINATE
     Dosage: 70 MILLIGRAM, TID
     Route: 042
     Dates: start: 20220405, end: 20220410
  12. ERDOSE [Concomitant]
     Indication: Prophylaxis
     Dosage: 300 MILLIGRAM, TID
     Route: 048
     Dates: start: 20220406, end: 20220506
  13. METRYNAL [Concomitant]
     Indication: Colitis ulcerative
     Dosage: 500 MILLIGRAM
     Route: 042
     Dates: start: 20220528, end: 20220609
  14. PREDNISOLONE [Concomitant]
     Active Substance: PREDNISOLONE
     Dosage: 30 MILLIGRAM, QD
     Route: 048
     Dates: start: 20210712, end: 20210718
  15. PREDNISOLONE [Concomitant]
     Active Substance: PREDNISOLONE
     Dosage: 27.5 MILLIGRAM, QD
     Route: 048
     Dates: start: 20210719, end: 20210725
  16. PREDNISOLONE [Concomitant]
     Active Substance: PREDNISOLONE
     Dosage: 25 MILLIGRAM, QD
     Route: 048
     Dates: start: 20210726, end: 20210801
  17. PREDNISOLONE [Concomitant]
     Active Substance: PREDNISOLONE
     Dosage: 22.5 MILLIGRAM, QD
     Route: 048
     Dates: start: 20210802, end: 20210808
  18. PREDNISOLONE [Concomitant]
     Active Substance: PREDNISOLONE
     Dosage: 20 MILLIGRAM, QD
     Route: 048
     Dates: start: 20210809, end: 20210815
  19. PREDNISOLONE [Concomitant]
     Active Substance: PREDNISOLONE
     Dosage: 17.5 MILLIGRAM, QD
     Route: 048
     Dates: start: 20210816, end: 20210822
  20. PREDNISOLONE [Concomitant]
     Active Substance: PREDNISOLONE
     Dosage: 15 MILLIGRAM, QD
     Route: 048
     Dates: start: 20210823, end: 20210829
  21. PREDNISOLONE [Concomitant]
     Active Substance: PREDNISOLONE
     Dosage: 12.5 MILLIGRAM, QD
     Route: 048
     Dates: start: 20210830, end: 20210905
  22. PREDNISOLONE [Concomitant]
     Active Substance: PREDNISOLONE
     Dosage: 10 MILLIGRAM, QD
     Route: 048
     Dates: start: 20210909, end: 20210912
  23. PREDNISOLONE [Concomitant]
     Active Substance: PREDNISOLONE
     Dosage: 7.5 MILLIGRAM, QD
     Route: 048
     Dates: start: 20210913, end: 20210921
  24. PREDNISOLONE [Concomitant]
     Active Substance: PREDNISOLONE
     Dosage: 5 MILLIGRAM, QD
     Route: 048
     Dates: start: 20210920, end: 20210926
  25. PREDNISOLONE [Concomitant]
     Active Substance: PREDNISOLONE
     Dosage: 25 MILLIGRAM, QD
     Route: 048
     Dates: start: 20210927, end: 20211003
  26. PREDNISOLONE [Concomitant]
     Active Substance: PREDNISOLONE
     Dosage: 15 MILLIGRAM, TID
     Route: 048
     Dates: start: 20220411, end: 20220416
  27. PREDNISOLONE [Concomitant]
     Active Substance: PREDNISOLONE
     Dosage: 15 MILLIGRAM, BID
     Route: 048
     Dates: start: 20220417, end: 20220423
  28. PREDNISOLONE [Concomitant]
     Active Substance: PREDNISOLONE
     Dosage: 12.5 MILLIGRAM, BID
     Route: 048
     Dates: start: 20220424, end: 20220430
  29. PREDNISOLONE [Concomitant]
     Active Substance: PREDNISOLONE
     Dosage: 10 MILLIGRAM, BID
     Route: 048
     Dates: start: 20220501, end: 20220507
  30. PREDNISOLONE [Concomitant]
     Active Substance: PREDNISOLONE
     Dosage: 15 MILLIGRAM, QD
     Route: 048
     Dates: start: 20220508, end: 20220514
  31. PREDNISOLONE [Concomitant]
     Active Substance: PREDNISOLONE
     Dosage: 10 MILLIGRAM, QD
     Route: 048
     Dates: start: 20220515, end: 20220521
  32. PREDNISOLONE [Concomitant]
     Active Substance: PREDNISOLONE
     Dosage: 5 MILLIGRAM, QD
     Route: 048
     Dates: start: 20220522, end: 20220528
  33. XELJANZ [Concomitant]
     Active Substance: TOFACITINIB CITRATE
     Dosage: 10 MILLIGRAM, BID
     Route: 048
     Dates: start: 20220521
  34. REMICADE [Concomitant]
     Active Substance: INFLIXIMAB
     Dosage: 400 MILLIGRAM, PRN
     Route: 042
     Dates: start: 20220405, end: 20220507
  35. CETIAXONE [Concomitant]
     Indication: Colitis ulcerative
     Dosage: UNK UNK, QD
     Route: 042
     Dates: start: 20220528, end: 20220609
  36. TYLENOL [Concomitant]
     Active Substance: ACETAMINOPHEN
     Indication: Colitis ulcerative
     Dosage: 1300 MILLILITER, TID
     Route: 048
     Dates: start: 20220528, end: 20220609
  37. PROPACETAMOL HYDROCHLORIDE [Concomitant]
     Active Substance: PROPACETAMOL HYDROCHLORIDE
     Indication: Colitis ulcerative
     Dosage: 10000 MILLILITER, QD
     Route: 042
     Dates: start: 20220528, end: 20220528
  38. FREAMINE III NOS [Concomitant]
     Active Substance: AMINO ACIDS
     Indication: Nutritional supplementation
     Dosage: 250 MILLILITER, QD
     Route: 042
     Dates: start: 20220528, end: 20220528
  39. FREAMINE III NOS [Concomitant]
     Active Substance: AMINO ACIDS
     Dosage: 2 MILLILITER, QD
     Route: 042
     Dates: start: 20220530, end: 20220602
  40. COMBIFLEX PERI [Concomitant]
     Indication: Colitis ulcerative
     Dosage: 1100 MILLILITER, QD
     Route: 042
     Dates: start: 20220530, end: 20220602
  41. FURTMAN [Concomitant]
     Indication: Mineral supplementation
     Dosage: 0.2 MILLILITER, QD
     Route: 042
     Dates: start: 20220530, end: 20220602
  42. BOLGRE [Concomitant]
     Dosage: 20 MILLILITER, QD
     Route: 048
     Dates: start: 20220608
  43. ESCHERICHIA COLI [Concomitant]
     Active Substance: ESCHERICHIA COLI
     Dosage: 28 MILLIGRAM, QD
     Route: 048
     Dates: start: 20220222, end: 20220403
  44. VITAMINS [Concomitant]
     Active Substance: VITAMINS
     Indication: Vitamin supplementation
     Dosage: 5 MILLILITER, QD
     Route: 042
     Dates: start: 20220528, end: 20220602

REACTIONS (1)
  - Colitis ulcerative [Recovered/Resolved]

NARRATIVE: CASE EVENT DATE: 20220528
